FAERS Safety Report 6942197-5 (Version None)
Quarter: 2010Q3

REPORT INFORMATION
  Report Type: 
  Country: None (occurrence: None)
  Receive Date: 20100826
  Receipt Date: 20100817
  Transmission Date: 20110219
  Serious: Yes (Other)
  Sender: FDA-Public Use
  Company Number: GB-ASTRAZENECA-2010SE38620

PATIENT
  Age: 41 Year
  Sex: Female

DRUGS (2)
  1. ANASTRAZOLE [Suspect]
     Indication: BREAST CANCER METASTATIC
     Route: 048
  2. GOSERELIN [Concomitant]
     Indication: BREAST CANCER METASTATIC

REACTIONS (2)
  - BONE DENSITY DECREASED [None]
  - SPINAL FRACTURE [None]
